FAERS Safety Report 7586671-X (Version None)
Quarter: 2011Q3

REPORT INFORMATION
  Report Type: 
  Country: None (occurrence: None)
  Receive Date: 20110701
  Receipt Date: 20110622
  Transmission Date: 20111222
  Serious: Yes (Hospitalization, Other)
  Sender: FDA-Public Use
  Company Number: US-ELI_LILLY_AND_COMPANY-US200908005989

PATIENT
  Sex: Male
  Weight: 77.098 kg

DRUGS (28)
  1. VITAMIN B-12 [Concomitant]
     Dosage: UNK, DAILY (1/D)
  2. CLINDAMYCIN [Concomitant]
     Dosage: UNK, UNKNOWN
  3. METFORMIN HCL [Concomitant]
     Dosage: 850 MG, 4/D
     Dates: start: 20040701, end: 20071101
  4. ACTOS                                   /AUS/ [Concomitant]
     Dosage: 10 MG, DAILY (1/D)
  5. FOLIC ACID [Concomitant]
     Dosage: UNK, DAILY (1/D)
  6. MIRTAZAPINE [Concomitant]
     Dosage: 15 MG, UNKNOWN
  7. TOPAMAX [Concomitant]
     Dosage: 100 MG, EACH EVENING
     Dates: end: 20090201
  8. DEXEDRINE [Concomitant]
     Dosage: 30 MG, EACH MORNING
  9. MULTI-VITAMIN [Concomitant]
     Dosage: UNK, DAILY (1/D)
  10. OXYCODONE HCL AND ACETAMINOPHEN [Concomitant]
     Dosage: UNK, UNKNOWN
  11. BYETTA [Suspect]
     Dosage: 10 UG, 2/D
     Dates: start: 20060301, end: 20071101
  12. CYMBALTA [Concomitant]
     Dosage: 30 MG, 4/D
  13. ALTACE [Concomitant]
     Dosage: 10 MG, UNKNOWN
  14. BYETTA [Suspect]
     Dosage: 5 UG, UNKNOWN
     Dates: start: 20060201, end: 20060301
  15. SIMVASTATIN [Concomitant]
     Indication: BLOOD CHOLESTEROL INCREASED
     Dosage: 80 MG, DAILY (1/D)
     Dates: start: 20060401
  16. DURAGESIC-100 [Concomitant]
     Dosage: 150 UG, QOD
  17. DOXYCYCLINE [Concomitant]
     Dosage: 100 MG, UNKNOWN
  18. LISINOPRIL [Concomitant]
     Indication: HYPERTENSION
     Dosage: UNK, DAILY (1/D)
     Dates: start: 20070401, end: 20080601
  19. LEVOXYL [Concomitant]
     Dosage: 175 UG, DAILY (1/D)
  20. ANDROGEL [Concomitant]
     Dosage: UNK, UNKNOWN
  21. PROVIGIL [Concomitant]
     Dosage: 100 MG, UNKNOWN
  22. TOPAMAX [Concomitant]
     Dosage: 150 MG, EACH EVENING
     Dates: start: 20060401
  23. CITALOPRAM [Concomitant]
     Indication: DEPRESSION
     Dosage: UNK, UNKNOWN
     Dates: start: 20070401, end: 20071101
  24. DEXEDRINE [Concomitant]
     Dosage: 50 MG, EACH EVENING
  25. CYTOMEL [Concomitant]
     Dosage: 12.5 UG, EACH MORNING
  26. ASPIRIN [Concomitant]
     Dosage: 325 MG, DAILY (1/D)
  27. PRANDIN [Concomitant]
     Dosage: 2 MG, UNKNOWN
  28. GABAPENTIN [Concomitant]
     Dosage: 300 MG, UNKNOWN

REACTIONS (2)
  - WEIGHT DECREASED [None]
  - PANCREATITIS ACUTE [None]
